FAERS Safety Report 9255003 (Version 3)
Quarter: 2013Q4

REPORT INFORMATION
  Report Type: Spontaneous
  Country: US (occurrence: US)
  Receive Date: 20130425
  Receipt Date: 20131018
  Transmission Date: 20140711
  Serious: Yes (Disabling, Other)
  Sender: FDA-Public Use
  Company Number: US-ASTRAZENECA-2013SE27469

PATIENT
  Age: 54 Year
  Sex: Female

DRUGS (26)
  1. NEXIUM [Suspect]
     Indication: GASTROOESOPHAGEAL REFLUX DISEASE
     Route: 048
     Dates: start: 1998, end: 201107
  2. NEXIUM [Suspect]
     Indication: GASTROOESOPHAGEAL REFLUX DISEASE
     Route: 048
     Dates: start: 20031113
  3. OMEPRAZOLE [Suspect]
     Indication: GASTROOESOPHAGEAL REFLUX DISEASE
     Route: 048
  4. OMEPRAZOLE [Suspect]
     Indication: HIATUS HERNIA
     Route: 048
  5. OMEPRAZOLE [Suspect]
     Indication: GASTROOESOPHAGEAL REFLUX DISEASE
     Route: 048
     Dates: start: 20100304
  6. OMEPRAZOLE [Suspect]
     Indication: HIATUS HERNIA
     Route: 048
     Dates: start: 20100304
  7. TUMS [Concomitant]
  8. ROLAIDS OTC [Concomitant]
     Indication: GASTROOESOPHAGEAL REFLUX DISEASE
     Dosage: 750 MG AS NEEDED
  9. ROLAIDS OTC [Concomitant]
     Indication: DYSPEPSIA
     Dosage: 750 MG AS NEEDED
  10. ROLAIDS OTC [Concomitant]
     Indication: DERMATITIS
     Dosage: 750 MG AS NEEDED
  11. ROLAIDS OTC [Concomitant]
     Indication: HIATUS HERNIA
     Dosage: 750 MG AS NEEDED
  12. PREMARIN [Concomitant]
     Indication: HORMONE REPLACEMENT THERAPY
  13. ASPIRIN [Concomitant]
     Dates: start: 201008
  14. PRAVASTATIN SODIUM [Concomitant]
     Indication: BLOOD CHOLESTEROL ABNORMAL
  15. ALPRAZOLAM [Concomitant]
     Indication: INSOMNIA
  16. MELOXICAM [Concomitant]
     Indication: OSTEOARTHRITIS
  17. MULTIVITAMIN [Concomitant]
     Dosage: DAILY
  18. TEMAZEPAM [Concomitant]
     Dates: start: 20031105
  19. MEDROXYPROGESTERONE [Concomitant]
     Dates: start: 20031105
  20. EFFEXOR XR [Concomitant]
     Dates: start: 20031113
  21. CELEBREX [Concomitant]
     Dates: start: 20031126
  22. XENICAL [Concomitant]
  23. DIAZEPAM [Concomitant]
     Dates: start: 20100115
  24. LEXAPRO [Concomitant]
     Dates: start: 20100115
  25. CEFUROXIME AXETIL [Concomitant]
     Dates: start: 20100311
  26. VYVANSE [Concomitant]
     Dates: start: 20100422

REACTIONS (14)
  - Foot fracture [Unknown]
  - Back disorder [Unknown]
  - Arthropathy [Unknown]
  - Limb discomfort [Unknown]
  - Anxiety [Unknown]
  - Osteoporosis [Unknown]
  - Bone disorder [Unknown]
  - Osteopenia [Unknown]
  - Intervertebral disc protrusion [Unknown]
  - Rheumatoid arthritis [Unknown]
  - Rib fracture [Unknown]
  - Chest injury [Unknown]
  - Depression [Unknown]
  - Limb injury [Unknown]
